FAERS Safety Report 6749299-7 (Version None)
Quarter: 2010Q2

REPORT INFORMATION
  Report Type: 
  Country: None (occurrence: None)
  Receive Date: 20100601
  Receipt Date: 20100517
  Transmission Date: 20101027
  Serious: Yes (Other)
  Sender: FDA-Public Use
  Company Number: US-ASTRAZENECA-2009SE16308

PATIENT
  Age: 38 Year
  Sex: Female
  Weight: 93 kg

DRUGS (4)
  1. SEROQUEL [Suspect]
     Route: 048
     Dates: start: 20081205
  2. XANEX [Concomitant]
     Dates: start: 20081205
  3. CLONOPIN [Concomitant]
     Dates: start: 20081205
  4. HYDROCODONE [Concomitant]
     Dosage: 10/650
     Dates: start: 20081205

REACTIONS (2)
  - NEUROPATHY PERIPHERAL [None]
  - TYPE 1 DIABETES MELLITUS [None]
